FAERS Safety Report 7699575-9 (Version None)
Quarter: 2011Q3

REPORT INFORMATION
  Report Type: 
  Country: None (occurrence: None)
  Receive Date: 20110822
  Receipt Date: 20110810
  Transmission Date: 20111222
  Serious: Yes (Hospitalization)
  Sender: FDA-Public Use
  Company Number: US-BIOGENIDEC-2011BI026790

PATIENT
  Age: 69 Year
  Sex: Male

DRUGS (3)
  1. TYSABRI [Suspect]
     Indication: MULTIPLE SCLEROSIS
     Route: 042
     Dates: start: 20100908
  2. DILANTIN [Concomitant]
     Indication: CONVULSION
  3. CLONAZEPAM [Concomitant]
     Indication: VISUAL IMPAIRMENT

REACTIONS (4)
  - CONSTIPATION [None]
  - APHASIA [None]
  - VIRAL UPPER RESPIRATORY TRACT INFECTION [None]
  - GASTROENTERITIS VIRAL [None]
